FAERS Safety Report 4673282-9 (Version None)
Quarter: 2005Q2

REPORT INFORMATION
  Report Type: 
  Country: None (occurrence: None)
  Receive Date: 20050524
  Receipt Date: 20050524
  Transmission Date: 20051028
  Serious: Yes (Hospitalization)
  Sender: FDA-Public Use
  Company Number: None

PATIENT
  Age: 82 Year
  Sex: Male
  Weight: 92.9874 kg

DRUGS (1)
  1. MORPHINE SULFATE [Suspect]
     Indication: ARTHRALGIA
     Dosage: 15MG PO TID
     Route: 048
     Dates: start: 20050123

REACTIONS (4)
  - AGGRESSION [None]
  - CONFUSIONAL STATE [None]
  - FALL [None]
  - MENTAL STATUS CHANGES [None]
